FAERS Safety Report 23857166 (Version 2)
Quarter: 2024Q2

REPORT INFORMATION
  Report Type: Spontaneous
  Country: US (occurrence: US)
  Receive Date: 20240515
  Receipt Date: 20240607
  Transmission Date: 20240716
  Serious: No
  Sender: FDA-Public Use
  Company Number: US-HETERO-HET2024US01360

PATIENT
  Sex: Female
  Weight: 104.76 kg

DRUGS (2)
  1. NEBIVOLOL [Suspect]
     Active Substance: NEBIVOLOL
     Indication: Blood pressure abnormal
     Dosage: 2.5 MILLIGRAM, QD
     Route: 048
  2. LOSARTAN [Concomitant]
     Active Substance: LOSARTAN
     Indication: Product used for unknown indication
     Dosage: 25 MILLIGRAM IN THE MORNING AND 12.5 MILLIGRAM IN THE EVENING
     Route: 065

REACTIONS (1)
  - Drug ineffective [Unknown]
